FAERS Safety Report 6824027-5 (Version None)
Quarter: 2010Q3

REPORT INFORMATION
  Report Type: 
  Country: None (occurrence: None)
  Receive Date: 20100708
  Receipt Date: 20061017
  Transmission Date: 20110219
  Serious: Yes (Other)
  Sender: FDA-Public Use
  Company Number: US-PFIZER INC-2006117625

PATIENT
  Sex: Female
  Weight: 68.95 kg

DRUGS (7)
  1. CHANTIX [Suspect]
     Indication: SMOKING CESSATION THERAPY
     Dates: start: 20060912
  2. THEOPHYLLINE [Concomitant]
  3. GLIPIZIDE [Concomitant]
  4. METFORMIN HCL [Concomitant]
  5. LISINOPRIL [Concomitant]
  6. ACETYLSALICYLIC ACID [Concomitant]
  7. THIOTHIXENE [Concomitant]

REACTIONS (3)
  - ABNORMAL DREAMS [None]
  - POLLAKIURIA [None]
  - POLYURIA [None]
